FAERS Safety Report 11866555 (Version 2)
Quarter: 2015Q4

REPORT INFORMATION
  Report Type: Spontaneous
  Country: US (occurrence: US)
  Receive Date: 20151224
  Receipt Date: 20151229
  Transmission Date: 20160305
  Serious: No
  Sender: FDA-Public Use
  Company Number: US-HORIZON-ACT-0226-2015

PATIENT
  Age: 10 Year
  Sex: Male

DRUGS (1)
  1. ACTIMMUNE [Suspect]
     Active Substance: INTERFERON GAMMA-1B
     Indication: CHRONIC GRANULOMATOUS DISEASE
     Dosage: 25 ?G DECREASED TO 20 ?G

REACTIONS (4)
  - Dizziness [Recovered/Resolved]
  - Headache [Recovered/Resolved]
  - Intentional product use issue [Recovered/Resolved]
  - Pyrexia [Recovered/Resolved]
